FAERS Safety Report 12178115 (Version 1)
Quarter: 2016Q1

REPORT INFORMATION
  Report Type: Report from Study
  Country: CA (occurrence: CA)
  Receive Date: 20160315
  Receipt Date: 20160315
  Transmission Date: 20160526
  Serious: Yes (Other)
  Sender: FDA-Public Use
  Company Number: CA-ROCHE-1713523

PATIENT
  Age: 69 Year
  Sex: Female

DRUGS (14)
  1. PROLIA [Concomitant]
     Active Substance: DENOSUMAB
     Route: 065
  2. MYFORTIC [Concomitant]
     Active Substance: MYCOPHENOLATE SODIUM
  3. DILANTIN [Concomitant]
     Active Substance: PHENYTOIN
  4. EFFEXOR [Concomitant]
     Active Substance: VENLAFAXINE HYDROCHLORIDE
  5. METHYLPREDNISOLONE. [Concomitant]
     Active Substance: METHYLPREDNISOLONE
     Indication: PREMEDICATION
     Route: 042
     Dates: start: 20150811
  6. RITUXAN [Suspect]
     Active Substance: RITUXIMAB
     Indication: RHEUMATOID ARTHRITIS
     Dosage: FREQUENCY:  DAY 1 AND DAY 15?LAST DOSE: 27/AUG/2015
     Route: 042
     Dates: start: 20150811
  7. SIMVASTATIN. [Concomitant]
     Active Substance: SIMVASTATIN
  8. OMEPRAZOLE. [Concomitant]
     Active Substance: OMEPRAZOLE
  9. ACETAMINOPHEN. [Concomitant]
     Active Substance: ACETAMINOPHEN
     Indication: PREMEDICATION
     Route: 048
     Dates: start: 20150811
  10. COVERSYL [Concomitant]
     Active Substance: PERINDOPRIL
  11. ATIVAN [Concomitant]
     Active Substance: LORAZEPAM
  12. PREDNISONE. [Concomitant]
     Active Substance: PREDNISONE
  13. FOLIC ACID. [Concomitant]
     Active Substance: FOLIC ACID
  14. DIPHENHYDRAMINE HCL [Concomitant]
     Active Substance: DIPHENHYDRAMINE HYDROCHLORIDE
     Indication: PREMEDICATION
     Route: 048
     Dates: start: 20150811

REACTIONS (13)
  - Bursitis [Unknown]
  - Cataract [Not Recovered/Not Resolved]
  - Drug effect delayed [Unknown]
  - Nasopharyngitis [Unknown]
  - Medication error [Unknown]
  - C-reactive protein increased [Unknown]
  - Blood pressure increased [Unknown]
  - Platelet count increased [Unknown]
  - Nausea [Recovered/Resolved]
  - Diarrhoea [Recovered/Resolved]
  - Rheumatoid arthritis [Unknown]
  - Insomnia [Unknown]
  - Headache [Recovered/Resolved]

NARRATIVE: CASE EVENT DATE: 201602
